FAERS Safety Report 9367389 (Version 1)
Quarter: 2013Q2

REPORT INFORMATION
  Report Type: Spontaneous
  Country: IT (occurrence: IT)
  Receive Date: 20130625
  Receipt Date: 20130625
  Transmission Date: 20140414
  Serious: Yes (Disabling)
  Sender: FDA-Public Use
  Company Number: IT-009507513-1306ITA010392

PATIENT
  Age: 78 Year
  Sex: Female

DRUGS (6)
  1. ALENDROS [Suspect]
     Indication: OSTEOPOROSIS
     Dosage: 1 DF, QW
     Route: 048
     Dates: start: 20120115, end: 20120415
  2. BONDRONAT [Suspect]
     Indication: BREAST CANCER METASTATIC
     Dosage: UNK
     Route: 048
     Dates: start: 20100601, end: 20130601
  3. ATENOLOL [Concomitant]
     Dosage: UNK
     Dates: start: 2010
  4. PENTACOL [Concomitant]
  5. PENTACOL [Concomitant]
     Dosage: UNK
     Dates: start: 2008
  6. FEMARA [Concomitant]
     Dosage: UNK
     Dates: start: 2010

REACTIONS (1)
  - Osteonecrosis [Not Recovered/Not Resolved]
